FAERS Safety Report 10703403 (Version 1)
Quarter: 2015Q1

REPORT INFORMATION
  Report Type: Spontaneous
  Country: US (occurrence: US)
  Receive Date: 20150112
  Receipt Date: 20150112
  Transmission Date: 20150721
  Serious: No
  Sender: FDA-Public Use
  Company Number: US-BIOGENIDEC-2015BI002702

PATIENT
  Sex: Male

DRUGS (9)
  1. CLONAZEPAM. [Concomitant]
     Active Substance: CLONAZEPAM
  2. ATENOLOL. [Concomitant]
     Active Substance: ATENOLOL
  3. TECFIDERA [Suspect]
     Active Substance: DIMETHYL FUMARATE
     Indication: PRODUCT USED FOR UNKNOWN INDICATION
  4. AMPYRA [Concomitant]
     Active Substance: DALFAMPRIDINE
     Indication: MULTIPLE SCLEROSIS
     Route: 048
  5. CALCIUM PLUS VITAMIN D [Concomitant]
     Active Substance: CALCIUM\VITAMIN D
  6. TIZANIDINE (TIZANIDINE) [Concomitant]
     Active Substance: TIZANIDINE
  7. AMLODIPINE [Concomitant]
     Active Substance: AMLODIPINE BESYLATE
  8. KEPPRA [Concomitant]
     Active Substance: LEVETIRACETAM
  9. CITRACAL [Concomitant]
     Active Substance: CALCIUM CITRATE

REACTIONS (2)
  - Abasia [Not Recovered/Not Resolved]
  - Blood triglycerides increased [Recovered/Resolved]
